FAERS Safety Report 10187910 (Version 1)
Quarter: 2014Q2

REPORT INFORMATION
  Report Type: Spontaneous
  Country: US (occurrence: US)
  Receive Date: 20140522
  Receipt Date: 20140522
  Transmission Date: 20141212
  Serious: No
  Sender: FDA-Public Use
  Company Number: US-SANOFI-AVENTIS-2013SA095272

PATIENT
  Sex: Female

DRUGS (9)
  1. LANTUS SOLOSTAR [Suspect]
     Indication: HYPERGLYCAEMIA
     Dosage: DOSE:30 UNIT(S)
     Route: 051
     Dates: start: 201307
  2. SOLOSTAR [Concomitant]
  3. NOVOLOG [Concomitant]
  4. DEXAMETHASONE [Concomitant]
     Indication: PLASMA CELL MYELOMA
  5. CYTOXAN [Concomitant]
  6. ALL OTHER THERAPEUTIC PRODUCTS [Concomitant]
  7. LIDOCAINE [Concomitant]
  8. PRILOCAINE [Concomitant]
  9. GLUCOPHAGE [Concomitant]

REACTIONS (2)
  - Injection site haemorrhage [Unknown]
  - Injection site pain [Unknown]
